FAERS Safety Report 18661228 (Version 1)
Quarter: 2020Q4

REPORT INFORMATION
  Report Type: Report from Study
  Country: None (occurrence: US)
  Receive Date: 20201224
  Receipt Date: 20201224
  Transmission Date: 20210114
  Serious: Yes (Hospitalization)
  Sender: FDA-Public Use
  Company Number: US-ABBVIE-20K-163-3687742-00

PATIENT
  Age: 65 Year
  Sex: Female

DRUGS (2)
  1. RINVOQ [Suspect]
     Active Substance: UPADACITINIB
     Indication: RHEUMATOID ARTHRITIS
     Route: 048
     Dates: start: 20191227, end: 20201204
  2. RINVOQ [Suspect]
     Active Substance: UPADACITINIB
     Route: 048
     Dates: start: 20201218

REACTIONS (12)
  - Balance disorder [Unknown]
  - Tremor [Unknown]
  - Blood magnesium decreased [Unknown]
  - Dyspepsia [Unknown]
  - Asthenia [Unknown]
  - Dysgeusia [Unknown]
  - Cough [Unknown]
  - Diarrhoea [Unknown]
  - Pain [Unknown]
  - Dizziness [Unknown]
  - SARS-CoV-2 test positive [Unknown]
  - Decreased appetite [Unknown]

NARRATIVE: CASE EVENT DATE: 202011
